FAERS Safety Report 5803855-9 (Version None)
Quarter: 2008Q3

REPORT INFORMATION
  Report Type: 
  Country: None (occurrence: None)
  Receive Date: 20080708
  Receipt Date: 20080626
  Transmission Date: 20090109
  Serious: Yes (Hospitalization, Disabling)
  Sender: FDA-Public Use
  Company Number: US-GILEAD-2008-0016633

PATIENT
  Sex: Female
  Weight: 113.41 kg

DRUGS (17)
  1. AMBRISENTAN [Suspect]
     Indication: PULMONARY ARTERIAL HYPERTENSION
     Route: 048
     Dates: start: 20071205
  2. COUMADIN [Concomitant]
     Indication: EMBOLISM
     Route: 048
     Dates: start: 20080110
  3. COUMADIN [Concomitant]
     Route: 048
     Dates: start: 20071231
  4. REVATIO [Concomitant]
     Indication: PULMONARY HYPERTENSION
     Route: 048
     Dates: start: 20070620
  5. FUROSEMIDE [Concomitant]
     Indication: OEDEMA
     Route: 048
     Dates: start: 20071128
  6. SPIRONOLACTONE [Concomitant]
     Indication: OEDEMA
     Route: 048
     Dates: start: 20071016
  7. POTASSIUM CHLORIDE [Concomitant]
     Indication: SUPPLEMENTATION THERAPY
     Route: 048
     Dates: start: 20071023
  8. POTASSIUM CHLORIDE [Concomitant]
     Route: 048
     Dates: start: 20071023
  9. ZAROXOLYN [Concomitant]
     Indication: OEDEMA
     Route: 048
     Dates: start: 20080201
  10. FERROUS GLUCONATE [Concomitant]
     Indication: SUPPLEMENTATION THERAPY
     Route: 048
     Dates: start: 20070620
  11. CLONAZEPAM [Concomitant]
     Indication: INSOMNIA
     Route: 048
     Dates: start: 20071023
  12. PERCOCET [Concomitant]
     Indication: ARTHRALGIA
     Dosage: 5-325
     Route: 048
     Dates: start: 20080524
  13. TYLENOL [Concomitant]
     Indication: HEADACHE
     Route: 048
     Dates: start: 20080123
  14. KEFLEX [Concomitant]
     Indication: INFECTION PROPHYLAXIS
     Route: 048
     Dates: start: 20080524
  15. TRAMADOL HCL [Concomitant]
     Indication: PAIN
     Route: 048
     Dates: start: 20080527
  16. ASCORBIC ACID [Concomitant]
     Indication: SUPPLEMENTATION THERAPY
     Route: 048
     Dates: start: 19800101
  17. MULTI-VITAMINS [Concomitant]
     Indication: SUPPLEMENTATION THERAPY
     Route: 048
     Dates: start: 19800101

REACTIONS (6)
  - ARTHRALGIA [None]
  - HEPATIC ENZYME INCREASED [None]
  - INTERNATIONAL NORMALISED RATIO INCREASED [None]
  - OEDEMA PERIPHERAL [None]
  - PAIN IN EXTREMITY [None]
  - RIGHT VENTRICULAR FAILURE [None]
